FAERS Safety Report 11099683 (Version 1)
Quarter: 2015Q2

REPORT INFORMATION
  Report Type: Spontaneous
  Country: FR (occurrence: None)
  Receive Date: 20150506
  Receipt Date: 20150506
  Transmission Date: 20150821
  Serious: Yes (Hospitalization)
  Sender: FDA-Public Use
  Company Number: NSR_02062_2015

PATIENT
  Age: 50 Year
  Sex: Female

DRUGS (3)
  1. ALCOHOL (ALCOHOL) [Suspect]
     Active Substance: ALCOHOL
     Indication: PRODUCT USED FOR UNKNOWN INDICATION
     Dosage: ONE BOTTLE [NOT THE PRESCRIBED AMOUNT]
     Route: 048
  2. ALPRAZOLAM (ALPRAZOLAM) [Suspect]
     Active Substance: ALPRAZOLAM
     Indication: PRODUCT USED FOR UNKNOWN INDICATION
     Dosage: 15 G, NOT THE PRESCRIBED AMOUNT
     Route: 048
  3. TRAMADOL (TRAMADOL) [Suspect]
     Active Substance: TRAMADOL
     Indication: PRODUCT USED FOR UNKNOWN INDICATION
     Dosage: 3 G, NOT THE PRESCRIBED AMOUNT
     Route: 048

REACTIONS (14)
  - Alcohol use [None]
  - Atrioventricular block [None]
  - Haemodynamic instability [None]
  - Respiratory arrest [None]
  - Electrocardiogram QRS complex prolonged [None]
  - Cyanosis [None]
  - Confusional state [None]
  - Somnolence [None]
  - Seizure [None]
  - Mydriasis [None]
  - Tachycardia [None]
  - Toxicity to various agents [None]
  - Intentional overdose [None]
  - Cardiotoxicity [None]
